FAERS Safety Report 7076306-7 (Version None)
Quarter: 2010Q4

REPORT INFORMATION
  Report Type: 
  Country: None (occurrence: None)
  Receive Date: 20101101
  Receipt Date: 20101022
  Transmission Date: 20110411
  Serious: Yes (Hospitalization)
  Sender: FDA-Public Use
  Company Number: JP-JNJFOC-20101007357

PATIENT
  Age: 80 Year
  Sex: Male
  Weight: 67 kg

DRUGS (15)
  1. MICONAZOLE NITRATE [Suspect]
     Route: 049
  2. MICONAZOLE NITRATE [Suspect]
     Indication: ORAL CANDIDIASIS
     Dosage: 15 G (5G THRICE A DAY)
     Route: 049
  3. WARFARIN [Interacting]
     Indication: ILL-DEFINED DISORDER
     Route: 048
  4. WARFARIN [Interacting]
     Route: 048
  5. PREDNISOLONE [Concomitant]
     Indication: INTERSTITIAL LUNG DISEASE
     Route: 048
  6. PREDNISOLONE [Concomitant]
     Route: 048
  7. LANSOPRAZOLE [Concomitant]
     Indication: GASTRIC ULCER
     Route: 048
  8. BACTRIM [Concomitant]
     Indication: PNEUMOCYSTIS JIROVECI PNEUMONIA
     Route: 048
  9. MAGMITT [Concomitant]
     Route: 048
  10. BONALON [Concomitant]
     Route: 048
  11. SODIUM HYALURONATE [Concomitant]
     Route: 047
  12. VASOLAN [Concomitant]
     Route: 048
  13. RYTHMODAN [Concomitant]
     Route: 048
  14. ARTIST [Concomitant]
     Route: 048
  15. BEPRIDIL HYDROCHLORIDE [Concomitant]
     Route: 048

REACTIONS (5)
  - DRUG INTERACTION [None]
  - HAEMORRHAGE SUBCUTANEOUS [None]
  - INTERNATIONAL NORMALISED RATIO INCREASED [None]
  - OEDEMA PERIPHERAL [None]
  - PAIN IN EXTREMITY [None]
